FAERS Safety Report 4345235-1 (Version None)
Quarter: 2004Q2

REPORT INFORMATION
  Report Type: 
  Country: None (occurrence: None)
  Receive Date: 20040423
  Receipt Date: 20040413
  Transmission Date: 20050107
  Serious: Yes (Other)
  Sender: FDA-Public Use
  Company Number: JP-ROCHE-365009

PATIENT
  Age: 68 Year
  Sex: Male
  Weight: 64 kg

DRUGS (9)
  1. TAMIFLU [Suspect]
     Route: 048
     Dates: start: 20040119, end: 20040122
  2. ALDACTONE-A [Concomitant]
     Indication: CARDIAC FAILURE
     Route: 048
     Dates: start: 19930908
  3. SLOW-K [Concomitant]
     Indication: HYPOKALAEMIA
     Route: 048
     Dates: start: 19960509
  4. ANCARON [Concomitant]
     Route: 048
     Dates: start: 19900626
  5. DEPAS [Concomitant]
     Indication: INSOMNIA
     Route: 048
     Dates: start: 19960509
  6. SOTACOR [Concomitant]
     Route: 048
     Dates: start: 20031106
  7. SELBEX [Concomitant]
     Indication: GASTRITIS
     Route: 048
     Dates: start: 20031209
  8. NOVAROK [Concomitant]
     Indication: CARDIAC FAILURE
     Route: 048
     Dates: start: 19970124
  9. WARFARIN SODIUM [Concomitant]
     Indication: THROMBOSIS
     Route: 048
     Dates: start: 20011220

REACTIONS (2)
  - HEPATIC FUNCTION ABNORMAL [None]
  - PANCYTOPENIA [None]
